FAERS Safety Report 24766502 (Version 2)
Quarter: 2025Q1

REPORT INFORMATION
  Report Type: Spontaneous
  Country: CZ (occurrence: CZ)
  Receive Date: 20241223
  Receipt Date: 20250110
  Transmission Date: 20250409
  Serious: Yes (Hospitalization, Other)
  Sender: SANOFI AVENTIS
  Company Number: CZ-MLMSERVICE-20241216-PI308385-00338-1

PATIENT
  Age: 80 Year
  Sex: Female

DRUGS (6)
  1. ZOLPIDEM TARTRATE [Suspect]
     Active Substance: ZOLPIDEM TARTRATE
     Indication: Insomnia
     Dosage: UNK, QD,USED AT UNCONTROLLED DOSES FOR 10 YEARS, DOSE OF ZOLPIDEM RANGED BETWEEN 20 AND 50 MG DAILY
     Dates: start: 2004
  2. PERINDOPRIL [Concomitant]
     Active Substance: PERINDOPRIL
     Indication: Hypertension
  3. AMLODIPINE [Concomitant]
     Active Substance: AMLODIPINE BESYLATE
     Indication: Hypertension
  4. BETAXOLOL [Concomitant]
     Active Substance: BETAXOLOL
     Indication: Hypertension
  5. METFORMIN [Concomitant]
     Active Substance: METFORMIN HYDROCHLORIDE
     Indication: Type 2 diabetes mellitus
  6. ALLOPURINOL [Concomitant]
     Active Substance: ALLOPURINOL
     Indication: Hyperuricaemia

REACTIONS (6)
  - Drug dependence [Unknown]
  - Drug abuse [Unknown]
  - Drug withdrawal syndrome [Recovering/Resolving]
  - Tremor [Recovering/Resolving]
  - Confusional state [Recovering/Resolving]
  - Restlessness [Recovering/Resolving]
